FAERS Safety Report 17536996 (Version 1)
Quarter: 2020Q1

REPORT INFORMATION
  Report Type: Spontaneous
  Country: US (occurrence: US)
  Receive Date: 20200313
  Receipt Date: 20200313
  Transmission Date: 20200409
  Serious: Yes (Hospitalization, Other)
  Sender: FDA-Public Use
  Company Number: US-ELI_LILLY_AND_COMPANY-US202003004324

PATIENT
  Sex: Male

DRUGS (14)
  1. ATORVASTATIN [Concomitant]
     Active Substance: ATORVASTATIN
  2. FINASTERIDE. [Concomitant]
     Active Substance: FINASTERIDE
  3. TAMSULOSIN [Concomitant]
     Active Substance: TAMSULOSIN
  4. DULOXETINE HYDROCHLORIDE. [Suspect]
     Active Substance: DULOXETINE HYDROCHLORIDE
     Dosage: 20 MG, DAILY
     Route: 048
  5. MOMETASONE FUROATE. [Concomitant]
     Active Substance: MOMETASONE FUROATE
  6. AMIDARONE [Suspect]
     Active Substance: AMIODARONE
     Dosage: UNK UNK, UNKNOWN
     Route: 048
  7. LISINOPRIL. [Concomitant]
     Active Substance: LISINOPRIL
  8. ENOXAPARINE SODIQUE [Concomitant]
     Active Substance: ENOXAPARIN SODIUM
  9. FEBUXOSTAT. [Concomitant]
     Active Substance: FEBUXOSTAT
  10. DULOXETINE HYDROCHLORIDE. [Suspect]
     Active Substance: DULOXETINE HYDROCHLORIDE
     Indication: PRODUCT USED FOR UNKNOWN INDICATION
     Dosage: 120 MG, DAILY
     Route: 048
  11. ASPIRIN (E.C.) [Concomitant]
     Active Substance: ASPIRIN
  12. WARFARIN [Concomitant]
     Active Substance: WARFARIN
  13. PANTOPRAZOLE [Concomitant]
     Active Substance: PANTOPRAZOLE
  14. AMIDARONE [Suspect]
     Active Substance: AMIODARONE
     Indication: PRODUCT USED FOR UNKNOWN INDICATION
     Dosage: UNK UNK, UNKNOWN
     Route: 042

REACTIONS (8)
  - Petit mal epilepsy [Recovered/Resolved]
  - Epigastric discomfort [Unknown]
  - Tobacco interaction [Recovered/Resolved]
  - Vomiting [Recovered/Resolved]
  - Myoclonus [Recovered/Resolved]
  - Ventricular tachycardia [Unknown]
  - Nausea [Recovering/Resolving]
  - Tremor [Recovering/Resolving]
